FAERS Safety Report 18170082 (Version 3)
Quarter: 2025Q3

REPORT INFORMATION
  Report Type: Spontaneous
  Country: CA (occurrence: CA)
  Receive Date: 20200819
  Receipt Date: 20250809
  Transmission Date: 20251021
  Serious: Yes (Other)
  Sender: ALEXION PHARMACEUTICALS
  Company Number: 2020SF03547

PATIENT
  Age: 61 Year
  Sex: Male

DRUGS (8)
  1. TICAGRELOR [Suspect]
     Active Substance: TICAGRELOR
     Indication: Post cardiac arrest syndrome
  2. METOPROLOL [Suspect]
     Active Substance: METOPROLOL
     Indication: Post cardiac arrest syndrome
     Route: 065
  3. ACETAMINOPHEN [Suspect]
     Active Substance: ACETAMINOPHEN
     Indication: Post cardiac arrest syndrome
     Dosage: 2 GRAM, QD
     Route: 065
  4. ASPIRIN [Suspect]
     Active Substance: ASPIRIN
     Indication: Post cardiac arrest syndrome
     Route: 065
  5. HEPARIN SODIUM [Suspect]
     Active Substance: HEPARIN SODIUM
     Indication: Post cardiac arrest syndrome
     Route: 065
  6. NITROGLYCERIN [Suspect]
     Active Substance: NITROGLYCERIN
     Indication: Post cardiac arrest syndrome
     Route: 065
  7. PANTOPRAZOLE [Suspect]
     Active Substance: PANTOPRAZOLE
     Indication: Post cardiac arrest syndrome
     Route: 065
  8. PERINDOPRIL [Suspect]
     Active Substance: PERINDOPRIL
     Indication: Post cardiac arrest syndrome
     Route: 065

REACTIONS (3)
  - Liver injury [Recovering/Resolving]
  - Off label use [Unknown]
  - Product use in unapproved indication [Recovering/Resolving]
